FAERS Safety Report 10078697 (Version 1)
Quarter: 2014Q2

REPORT INFORMATION
  Report Type: Spontaneous
  Country: AU (occurrence: None)
  Receive Date: 20140411
  Receipt Date: 20140411
  Transmission Date: 20141212
  Serious: Yes (Other)
  Sender: FDA-Public Use
  Company Number: SUR-SPL-2014-04231

PATIENT
  Age: 66 Year
  Sex: Male

DRUGS (5)
  1. AMLODIPINE (AMLODIPINE) [Suspect]
     Indication: PRODUCT USED FOR UNKNOWN INDICATION
  2. DABIGATRAN (DABIGATRAN) (DABIGA TRAN) [Suspect]
     Indication: PRODUCT USED FOR UNKNOWN INDICATION
  3. METOPROLOL (METOPROLOL) [Suspect]
     Indication: PRODUCT USED FOR UNKNOWN INDICATION
  4. OLMESARTAN (OLMESARTAN) (TABLET) (OLMESARTAN) [Suspect]
     Indication: PRODUCT USED FOR UNKNOWN INDICATION
  5. MOXONIDINE [Suspect]
     Indication: PRODUCT USED FOR UNKNOWN INDICATION

REACTIONS (7)
  - Overdose [None]
  - Coagulopathy [None]
  - International normalised ratio increased [None]
  - Activated partial thromboplastin time prolonged [None]
  - Renal impairment [None]
  - Haemodynamic instability [None]
  - Haemodialysis [None]
